FAERS Safety Report 6137064-3 (Version None)
Quarter: 2009Q1

REPORT INFORMATION
  Report Type: 
  Country: None (occurrence: None)
  Receive Date: 20090326
  Receipt Date: 20090313
  Transmission Date: 20090719
  Serious: Yes (Hospitalization, Other)
  Sender: FDA-Public Use
  Company Number: 232698K09USA

PATIENT
  Age: 19 Year
  Sex: Male
  Weight: 116 kg

DRUGS (2)
  1. REBIF [Suspect]
     Indication: MULTIPLE SCLEROSIS
     Dosage: 44 MCG, 3 IN 1 WEEKS, SUBCUTANEOUS
     Route: 058
     Dates: start: 20081030
  2. SOLU-MEDROL [Suspect]
     Indication: MULTIPLE SCLEROSIS RELAPSE
     Dates: start: 20090309, end: 20090313

REACTIONS (7)
  - ARRHYTHMIA [None]
  - BLOOD PRESSURE DIASTOLIC DECREASED [None]
  - FEELING OF BODY TEMPERATURE CHANGE [None]
  - HEAT EXHAUSTION [None]
  - MULTIPLE SCLEROSIS RELAPSE [None]
  - OPTIC NEURITIS [None]
  - TEARFULNESS [None]
